FAERS Safety Report 20968099 (Version 2)
Quarter: 2022Q3

REPORT INFORMATION
  Report Type: Spontaneous
  Country: US (occurrence: US)
  Receive Date: 20220616
  Receipt Date: 20220702
  Transmission Date: 20221027
  Serious: Yes (Death, Hospitalization, Other)
  Sender: FDA-Public Use
  Company Number: US-TEVA-2022-US-2046268

PATIENT
  Age: 68 Year
  Sex: Female

DRUGS (3)
  1. PROPOFOL [Suspect]
     Active Substance: PROPOFOL
     Indication: Sedative therapy
     Route: 042
  2. ATORVASTATIN [Suspect]
     Active Substance: ATORVASTATIN
     Indication: Prophylaxis
     Route: 065
  3. SIMVASTATIN [Suspect]
     Active Substance: SIMVASTATIN
     Indication: Prophylaxis
     Route: 065

REACTIONS (4)
  - Rhabdomyolysis [Fatal]
  - Renal failure [Fatal]
  - Myopathy [Unknown]
  - Drug ineffective [Unknown]
